FAERS Safety Report 7150726-4 (Version None)
Quarter: 2010Q4

REPORT INFORMATION
  Report Type: 
  Country: None (occurrence: None)
  Receive Date: 20101124
  Receipt Date: 20101028
  Transmission Date: 20110411
  Serious: Yes (Hospitalization)
  Sender: FDA-Public Use
  Company Number: 1000015781

PATIENT
  Age: 30 Year
  Sex: Male

DRUGS (5)
  1. ACAMPROSATE CALCIUM [Suspect]
     Indication: ALCOHOL POISONING
     Dosage: 333 MG (333 MG, 1 IN 1 D), ORAL
     Route: 048
     Dates: start: 20100715, end: 20100719
  2. OXAZEPAM [Suspect]
     Indication: ALCOHOL POISONING
     Dosage: ORAL
     Route: 048
     Dates: start: 20100715, end: 20100719
  3. OXAZEPAM [Suspect]
     Indication: ALCOHOL POISONING
  4. VITAMIN B AND B6 [Concomitant]
  5. NICOBION (NICOTINAMIDE) [Concomitant]

REACTIONS (1)
  - CYTOLYTIC HEPATITIS [None]
